FAERS Safety Report 19356624 (Version 1)
Quarter: 2021Q2

REPORT INFORMATION
  Report Type: Spontaneous
  Country: US (occurrence: US)
  Receive Date: 20210601
  Receipt Date: 20210601
  Transmission Date: 20210717
  Serious: No
  Sender: FDA-Public Use
  Company Number: None

PATIENT
  Age: 87 Year
  Sex: Male

DRUGS (12)
  1. ELIQUIS [Concomitant]
     Active Substance: APIXABAN
  2. LISINOPRIL. [Concomitant]
     Active Substance: LISINOPRIL
  3. SERTRALINE [Concomitant]
     Active Substance: SERTRALINE HYDROCHLORIDE
  4. PRILOSEC OTC [Concomitant]
     Active Substance: OMEPRAZOLE MAGNESIUM
  5. VICTOZA [Concomitant]
     Active Substance: LIRAGLUTIDE
  6. ATORVASTATIN [Concomitant]
     Active Substance: ATORVASTATIN
  7. AMLODIPINE [Concomitant]
     Active Substance: AMLODIPINE BESYLATE
  8. ASPIRIN 81 [Concomitant]
     Active Substance: ASPIRIN
  9. ESBRIET [Suspect]
     Active Substance: PIRFENIDONE
     Indication: IDIOPATHIC PULMONARY FIBROSIS
     Route: 048
     Dates: start: 20200812
  10. METFORMIN ER [Concomitant]
     Active Substance: METFORMIN HYDROCHLORIDE
  11. SOTALOL. [Concomitant]
     Active Substance: SOTALOL
  12. CARB/LEVO [Concomitant]
     Active Substance: CARBIDOPA\LEVODOPA

REACTIONS (2)
  - Therapy interrupted [None]
  - Cardiac failure congestive [None]

NARRATIVE: CASE EVENT DATE: 20210511
